FAERS Safety Report 6941568-0 (Version None)
Quarter: 2010Q3

REPORT INFORMATION
  Report Type: 
  Country: None (occurrence: None)
  Receive Date: 20100825
  Receipt Date: 20100816
  Transmission Date: 20110219
  Serious: Yes (Hospitalization)
  Sender: FDA-Public Use
  Company Number: US-US-EMD SERONO, INC.-231875J09USA

PATIENT
  Sex: Female

DRUGS (7)
  1. REBIF [Suspect]
     Indication: MULTIPLE SCLEROSIS
     Route: 058
     Dates: start: 20090622, end: 20091001
  2. REBIF [Suspect]
     Route: 058
     Dates: start: 20090101, end: 20091001
  3. REBIF [Suspect]
     Route: 058
     Dates: start: 20100317, end: 20100101
  4. REBIF [Suspect]
     Route: 058
     Dates: start: 20100101, end: 20100811
  5. UNSPECIFIED MEDICATIONS [Concomitant]
  6. MIRALAX [Concomitant]
     Indication: CONSTIPATION
  7. NARCOTIC MEDICATIONS [Concomitant]

REACTIONS (12)
  - ABDOMINAL DISTENSION [None]
  - CONSTIPATION [None]
  - CONVULSION [None]
  - DYSPNOEA [None]
  - FAECALOMA [None]
  - FALL [None]
  - GASTROINTESTINAL INFECTION [None]
  - HEADACHE [None]
  - INJECTION SITE REACTION [None]
  - PAIN [None]
  - STOMATITIS [None]
  - WEIGHT INCREASED [None]
